FAERS Safety Report 6109155-4 (Version None)
Quarter: 2009Q1

REPORT INFORMATION
  Report Type: 
  Country: None (occurrence: None)
  Receive Date: 20090306
  Receipt Date: 20090306
  Transmission Date: 20090719
  Serious: Yes (Life-Threatening)
  Sender: FDA-Public Use
  Company Number: None

PATIENT
  Age: 20 Year
  Sex: Male
  Weight: 51.7101 kg

DRUGS (1)
  1. DEPAKOTE ER [Suspect]
     Indication: GRAND MAL CONVULSION
     Dosage: 500 MG 3 TAB PO, QDAY BIRTH TO PRESENT
     Route: 048

REACTIONS (2)
  - PRODUCT QUALITY ISSUE [None]
  - RESPIRATORY ARREST [None]
